FAERS Safety Report 8632134 (Version 2)
Quarter: 2012Q4

REPORT INFORMATION
  Report Type: 
  Country: US (occurrence: US)
  Receive Date: 20120625
  Receipt Date: 20121022
  Transmission Date: 20130627
  Serious: Yes (Hospitalization)
  Sender: FDA-Public Use
  Company Number: US-BAYER-2012-059605

PATIENT
  Age: 49 Year
  Sex: Female
  Weight: 68.03 kg

DRUGS (18)
  1. YASMIN [Suspect]
     Indication: CONTRACEPTION
     Dosage: UNK
     Dates: start: 20060706, end: 20080610
  2. YASMIN [Suspect]
     Indication: CONTRACEPTION
     Dosage: UNK
     Dates: start: 20090304, end: 200910
  3. YASMIN [Suspect]
     Indication: CONTRACEPTION
     Dosage: UNK
     Dates: start: 20100125, end: 20100728
  4. OCELLA [Suspect]
     Indication: CONTRACEPTION
     Dosage: UNK
     Dates: start: 20080711, end: 20091228
  5. ALPRAZOLAM [Concomitant]
     Indication: ANXIETY
     Dosage: 0.5 mg, UNK
     Dates: start: 2005
  6. XANAX [Concomitant]
     Indication: ANXIETY
     Dosage: 0.5 mg, UNK
     Dates: start: 2005
  7. FLUOXETINE [Concomitant]
     Indication: DEPRESSION
     Dosage: 20 mg, UNK
     Dates: start: 2006
  8. CARVEDILOL [Concomitant]
     Indication: HYPERTENSION
     Dosage: 12.5 mg, UNK
     Dates: start: 2007
  9. COREG [Concomitant]
     Indication: HYPERTENSION
     Dosage: 12.5 mg, UNK
     Dates: start: 2007
  10. NEXIUM [Concomitant]
     Indication: GASTROOESOPHAGEAL REFLUX DISEASE
     Dosage: 40 mg, UNK
     Dates: start: 2008, end: 2011
  11. MULTIVITAMIN [Concomitant]
     Dosage: 1 pill daily
  12. CHLORDIAZEPOXIDE W/CLIDINIUM [Concomitant]
     Indication: ABDOMINAL PAIN UPPER
     Dosage: 5-2.5 twice daily
  13. PROZAC [Concomitant]
  14. MAXZIDE [Concomitant]
     Dosage: 25 mg q (interpreted as every) day
  15. OXYCODONE/APAP [Concomitant]
     Indication: PAIN
     Dosage: 5 mg-325 mg 1 tablet Q4HR, PRN
  16. IBUPROFEN [Concomitant]
     Dosage: One tablet three times daily
  17. TYLENOL [Concomitant]
  18. RESTORIL [Concomitant]

REACTIONS (9)
  - Gallbladder injury [None]
  - Cholelithiasis [None]
  - Thrombophlebitis superficial [None]
  - Injury [None]
  - Pain [None]
  - Pain in extremity [None]
  - Abdominal pain upper [None]
  - Regurgitation [None]
  - Dyspepsia [None]
